FAERS Safety Report 5402154-7 (Version None)
Quarter: 2007Q3

REPORT INFORMATION
  Report Type: 
  Country: None (occurrence: None)
  Receive Date: 20070801
  Receipt Date: 20070727
  Transmission Date: 20080115
  Serious: Yes (Hospitalization)
  Sender: FDA-Public Use
  Company Number: NO-RB-007526-07

PATIENT
  Age: 48 Year
  Sex: Male

DRUGS (3)
  1. SUBUTEX [Suspect]
     Route: 065
     Dates: start: 20050201, end: 20070328
  2. SUBOXONE [Suspect]
     Dosage: DOSAGE UNKNOWN
     Route: 065
     Dates: start: 20070329
  3. NARCOTICS [Concomitant]
     Indication: DRUG USE FOR UNKNOWN INDICATION
     Dosage: DOSAGE UNKNOWN
     Route: 065

REACTIONS (4)
  - ALANINE AMINOTRANSFERASE INCREASED [None]
  - FATIGUE [None]
  - JAUNDICE [None]
  - LIVER DISORDER [None]
